APPROVED DRUG PRODUCT: MALATHION
Active Ingredient: MALATHION
Strength: 0.5%
Dosage Form/Route: LOTION;TOPICAL
Application: A091559 | Product #001
Applicant: SUVEN PHARMACEUTICALS LTD
Approved: May 23, 2012 | RLD: No | RS: Yes | Type: RX